FAERS Safety Report 8046455-5 (Version None)
Quarter: 2012Q1

REPORT INFORMATION
  Report Type: 
  Country: None (occurrence: None)
  Receive Date: 20120113
  Receipt Date: 20120111
  Transmission Date: 20120608
  Serious: Yes (Hospitalization)
  Sender: FDA-Public Use
  Company Number: JP-ABBOTT-11P-087-0885609-00

PATIENT
  Sex: Female
  Weight: 53 kg

DRUGS (10)
  1. PREDNISOLONE [Suspect]
  2. PREDNISOLONE [Suspect]
  3. DICLOFENAC SODIUM [Concomitant]
     Indication: RHEUMATOID ARTHRITIS
     Route: 048
     Dates: end: 20111220
  4. ALENDRONATE SODIUM [Concomitant]
     Indication: OSTEOPOROSIS
     Route: 048
     Dates: end: 20111220
  5. LANSOPRAZOLE [Concomitant]
     Indication: GASTRIC ULCER
     Dates: end: 20111220
  6. PREDNISOLONE [Suspect]
  7. HUMIRA [Suspect]
     Indication: RHEUMATOID ARTHRITIS
     Route: 058
     Dates: start: 20110715, end: 20111202
  8. PREDNISOLONE [Suspect]
     Dates: start: 20111125, end: 20111220
  9. PREDNISOLONE [Suspect]
     Indication: RHEUMATOID ARTHRITIS
  10. RHEUMATREX [Suspect]
     Indication: RHEUMATOID ARTHRITIS
     Dates: end: 20111220

REACTIONS (4)
  - PYREXIA [None]
  - NASAL CONGESTION [None]
  - PNEUMONIA [None]
  - PNEUMOCYSTIS JIROVECI PNEUMONIA [None]
